FAERS Safety Report 10422423 (Version 1)
Quarter: 2014Q3

REPORT INFORMATION
  Report Type: Spontaneous
  Country: US (occurrence: US)
  Receive Date: 20140901
  Receipt Date: 20140901
  Transmission Date: 20150326
  Serious: Yes (Other)
  Sender: FDA-Public Use
  Company Number: US-SA-2014SA117923

PATIENT
  Age: 22 Year
  Sex: Male

DRUGS (4)
  1. TACROLIMUS. [Suspect]
     Active Substance: TACROLIMUS
     Indication: IMMUNOSUPPRESSION
     Route: 065
     Dates: start: 2006, end: 2006
  2. MYCOPHENOLATE MOFETIL. [Suspect]
     Active Substance: MYCOPHENOLATE MOFETIL
     Indication: IMMUNOSUPPRESSION
     Route: 065
     Dates: start: 2006, end: 2006
  3. ANTI-THYMOCYTE GLOBULIN (RABBIT) [Suspect]
     Active Substance: LAPINE T-LYMPHOCYTE IMMUNE GLOBULIN
     Indication: IMMUNOSUPPRESSION
     Route: 065
     Dates: start: 2006, end: 2006
  4. PREDNISONE. [Suspect]
     Active Substance: PREDNISONE
     Indication: IMMUNOSUPPRESSION
     Route: 065
     Dates: start: 2006, end: 2006

REACTIONS (3)
  - Toxicity to various agents [Unknown]
  - Diabetes mellitus [Unknown]
  - Hypertension [Unknown]

NARRATIVE: CASE EVENT DATE: 2006
